FAERS Safety Report 19491234 (Version 2)
Quarter: 2021Q3

REPORT INFORMATION
  Report Type: Spontaneous
  Country: US (occurrence: US)
  Receive Date: 20210705
  Receipt Date: 20210820
  Transmission Date: 20211014
  Serious: No
  Sender: FDA-Public Use
  Company Number: US-SA-2021SA217509

PATIENT
  Sex: Female

DRUGS (6)
  1. MONO LINYAH [Concomitant]
     Dosage: 0.25?0.
  2. VITAMIN B COMPLEX WITH C [Concomitant]
     Active Substance: ASCORBIC ACID\CALCIUM PANTOTHENATE\CYANOCOBALAMIN\NIACINAMIDE\PYRIDOXINE HYDROCHLORIDE\RIBOFLAVIN\THIAMINE MONONITRATE
  3. AUBAGIO [Suspect]
     Active Substance: TERIFLUNOMIDE
     Indication: MULTIPLE SCLEROSIS
     Dosage: 14 MG, QD
     Route: 048
     Dates: start: 20200703
  4. MAGNESIUM [Concomitant]
     Active Substance: MAGNESIUM
  5. LYSINE [Concomitant]
     Active Substance: LYSINE
     Dosage: 500 MG
  6. PROGESTERONE. [Concomitant]
     Active Substance: PROGESTERONE
     Dosage: 100 MG

REACTIONS (3)
  - Headache [Not Recovered/Not Resolved]
  - Fatigue [Unknown]
  - Alopecia [Unknown]
